FAERS Safety Report 4994095-4 (Version None)
Quarter: 2006Q2

REPORT INFORMATION
  Report Type: 
  Country: None (occurrence: None)
  Receive Date: 20060505
  Receipt Date: 20060425
  Transmission Date: 20061013
  Serious: Yes (Death)
  Sender: FDA-Public Use
  Company Number: KR-JNJFOC-20060405327

PATIENT
  Sex: Male
  Weight: 58 kg

DRUGS (3)
  1. REMINYL PR [Suspect]
     Route: 048
  2. REMINYL PR [Suspect]
     Indication: DEMENTIA ALZHEIMER'S TYPE
     Route: 048
  3. AMLODIPINE [Concomitant]
     Indication: HYPERTENSION

REACTIONS (5)
  - ELECTROLYTE IMBALANCE [None]
  - HYPERKALAEMIA [None]
  - HYPONATRAEMIA [None]
  - PNEUMONIA [None]
  - RENAL FAILURE ACUTE [None]
